FAERS Safety Report 9917536 (Version 1)
Quarter: 2014Q1

REPORT INFORMATION
  Report Type: Report from Study
  Country: BR (occurrence: BR)
  Receive Date: 20140221
  Receipt Date: 20140221
  Transmission Date: 20141002
  Serious: Yes (Death)
  Sender: FDA-Public Use
  Company Number: PHHY2014BR021268

PATIENT
  Sex: Male
  Weight: 80 kg

DRUGS (2)
  1. EXELON PATCH [Suspect]
     Indication: MEMORY IMPAIRMENT
     Dosage: 01 DF, DAILY
     Route: 062
     Dates: start: 201309
  2. RISPERIDONE [Concomitant]
     Indication: SLEEP DISORDER
     Dosage: 01 DF, UNK
     Dates: start: 2013

REACTIONS (4)
  - Cardiac failure congestive [Fatal]
  - Acute myocardial infarction [Fatal]
  - Hypertension [Fatal]
  - Diabetes mellitus [Fatal]
